FAERS Safety Report 24342436 (Version 2)
Quarter: 2024Q3

REPORT INFORMATION
  Report Type: Spontaneous
  Country: US (occurrence: US)
  Receive Date: 20240920
  Receipt Date: 20240930
  Transmission Date: 20241017
  Serious: Yes (Hospitalization)
  Sender: RIGEL PHARMACEUTICALS
  Company Number: US-RIGEL Pharmaceuticals. INC- 20240900067

PATIENT
  Age: 21 Year
  Sex: Female

DRUGS (1)
  1. TAVALISSE [Suspect]
     Active Substance: FOSTAMATINIB
     Indication: Immune thrombocytopenia
     Dosage: 100 MG, BID
     Route: 048
     Dates: start: 20240801

REACTIONS (3)
  - Epistaxis [Unknown]
  - Epistaxis [Unknown]
  - Platelet count [Unknown]

NARRATIVE: CASE EVENT DATE: 20240829
